FAERS Safety Report 24808937 (Version 1)
Quarter: 2025Q1

REPORT INFORMATION
  Report Type: Report from Study
  Country: ES (occurrence: ES)
  Receive Date: 20250106
  Receipt Date: 20250106
  Transmission Date: 20250409
  Serious: Yes (Hospitalization)
  Sender: TEVA
  Company Number: None

PATIENT
  Age: 75 Year
  Sex: Female

DRUGS (4)
  1. CAPECITABINE [Suspect]
     Active Substance: CAPECITABINE
     Indication: Product used for unknown indication
     Dosage: 2000 MG/M2 EVERY 3 WEEKS (1 CYCLE)
     Route: 048
     Dates: start: 20240711, end: 20240801
  2. PANTOPRAZOL NORMON [Concomitant]
     Indication: Product used for unknown indication
     Dosage: EFG, 28 TABLETS (BLISTER)
     Route: 048
     Dates: start: 20230213
  3. LORAZEPAM [Concomitant]
     Active Substance: LORAZEPAM
     Indication: Product used for unknown indication
     Dosage: EFG, 25 TABLETS
     Route: 048
     Dates: start: 20240401
  4. SERTRALINE HYDROCHLORIDE [Concomitant]
     Active Substance: SERTRALINE HYDROCHLORIDE
     Indication: Product used for unknown indication
     Dosage: EFG, 30 TABLETS
     Route: 048
     Dates: start: 20220318

REACTIONS (2)
  - Pancytopenia [Recovered/Resolved]
  - Mucosal inflammation [Recovered/Resolved]

NARRATIVE: CASE EVENT DATE: 20240731
